FAERS Safety Report 12446333 (Version 1)
Quarter: 2016Q2

REPORT INFORMATION
  Report Type: Spontaneous
  Country: FR (occurrence: FR)
  Receive Date: 20160608
  Receipt Date: 20160608
  Transmission Date: 20160815
  Serious: Yes (Other)
  Sender: FDA-Public Use
  Company Number: FR-BAUSCH-BL-2016-013069

PATIENT
  Age: 70 Year
  Sex: Female

DRUGS (4)
  1. AZOPT [Suspect]
     Active Substance: BRINZOLAMIDE
     Indication: INTRAOCULAR PRESSURE TEST ABNORMAL
     Route: 065
  2. VALIUM [Concomitant]
     Active Substance: DIAZEPAM
     Indication: PRODUCT USED FOR UNKNOWN INDICATION
  3. CARTEOL LP 2% COLLYRE A LIBERATION PROLONGEE [Suspect]
     Active Substance: CARTEOLOL
     Indication: INTRAOCULAR PRESSURE TEST ABNORMAL
     Route: 065
     Dates: end: 2016
  4. TRAVATAN [Suspect]
     Active Substance: TRAVOPROST
     Indication: INTRAOCULAR PRESSURE TEST ABNORMAL
     Route: 065

REACTIONS (15)
  - Eye irritation [Unknown]
  - Mydriasis [Unknown]
  - Fall [Unknown]
  - Diplopia [Not Recovered/Not Resolved]
  - Nightmare [Unknown]
  - Monoplegia [Recovered/Resolved]
  - Hyperthyroidism [Unknown]
  - Local swelling [Unknown]
  - Choking sensation [Unknown]
  - Angioedema [Unknown]
  - Eye movement disorder [Recovered/Resolved]
  - Eye swelling [Unknown]
  - Amnesia [Not Recovered/Not Resolved]
  - Vision blurred [Not Recovered/Not Resolved]
  - Insomnia [Unknown]
